FAERS Safety Report 5217712-2 (Version None)
Quarter: 2006Q4

REPORT INFORMATION
  Report Type: 
  Country: None (occurrence: None)
  Receive Date: 20061130
  Receipt Date: 20060711
  Transmission Date: 20070319
  Serious: Yes (Hospitalization)
  Sender: FDA-Public Use
  Company Number: US200601002900

PATIENT
  Age: 51 Year
  Sex: Male
  Weight: 102 kg

DRUGS (2)
  1. ZYPREXA [Suspect]
     Indication: DEPRESSION
     Dosage: 10 MG
     Dates: start: 20000101, end: 20030912
  2. PROZAC [Concomitant]

REACTIONS (3)
  - CHEST PAIN [None]
  - DIABETES MELLITUS NON-INSULIN-DEPENDENT [None]
  - HYPERTENSION [None]
